FAERS Safety Report 17702464 (Version 1)
Quarter: 2020Q2

REPORT INFORMATION
  Report Type: Spontaneous
  Country: US (occurrence: US)
  Receive Date: 20200423
  Receipt Date: 20200423
  Transmission Date: 20200714
  Serious: No
  Sender: FDA-Public Use
  Company Number: US-TEVA-2020-US-1224909

PATIENT
  Sex: Female

DRUGS (3)
  1. VERAPAMIL HYDROCHLORIDE. [Suspect]
     Active Substance: VERAPAMIL HYDROCHLORIDE
     Dosage: 120 MILLIGRAM DAILY; IN THE EVENING
     Route: 065
  2. VERAPAMIL HYDROCHLORIDE. [Suspect]
     Active Substance: VERAPAMIL HYDROCHLORIDE
     Dosage: 160 MILLIGRAM DAILY;
     Route: 065
  3. VERAPAMIL HYDROCHLORIDE. [Suspect]
     Active Substance: VERAPAMIL HYDROCHLORIDE
     Dosage: STARTED ON 30 MG DAILY, INCREASED TO 80 MG TWICE A DAY, THEN TO 120 MG ONCE DAILY IN THE EVENING
     Route: 065

REACTIONS (7)
  - Dizziness [Unknown]
  - Herpes zoster [Unknown]
  - Palpitations [Unknown]
  - Limb discomfort [Unknown]
  - Weight increased [Unknown]
  - Dyspnoea [Unknown]
  - Abdominal distension [Unknown]
